FAERS Safety Report 20799384 (Version 1)
Quarter: 2022Q2

REPORT INFORMATION
  Report Type: Spontaneous
  Country: US (occurrence: US)
  Receive Date: 20220508
  Receipt Date: 20220508
  Transmission Date: 20220721
  Serious: Yes (Other)
  Sender: FDA-Public Use
  Company Number: US-AMGEN-USASP2022077167

PATIENT
  Age: 65 Year
  Sex: Female

DRUGS (1)
  1. OTEZLA [Suspect]
     Active Substance: APREMILAST
     Indication: Product used for unknown indication
     Dosage: 30 MILLIGRAM, QD
     Route: 048
     Dates: start: 201911, end: 202204

REACTIONS (3)
  - Renal impairment [Unknown]
  - Off label use [Unknown]
  - Back pain [Unknown]

NARRATIVE: CASE EVENT DATE: 20191101
